FAERS Safety Report 6204084-X (Version None)
Quarter: 2009Q2

REPORT INFORMATION
  Report Type: 
  Country: None (occurrence: None)
  Receive Date: 20090526
  Receipt Date: 20090526
  Transmission Date: 20091009
  Serious: Yes (Other)
  Sender: FDA-Public Use
  Company Number: None

PATIENT
  Age: 6 Year
  Sex: Female
  Weight: 24.9478 kg

DRUGS (1)
  1. BACTINE SPRAY BAYER HEALTHCARE LLC [Suspect]
     Indication: EXCORIATION
     Dosage: SPRAYED ON KNEE 1 TIME
     Dates: start: 20090523, end: 20090523

REACTIONS (1)
  - ANAPHYLACTIC SHOCK [None]
